FAERS Safety Report 7918675-9 (Version None)
Quarter: 2011Q4

REPORT INFORMATION
  Report Type: 
  Country: None (occurrence: None)
  Receive Date: 20111116
  Receipt Date: 20111107
  Transmission Date: 20120403
  Serious: Yes (Hospitalization, Other)
  Sender: FDA-Public Use
  Company Number: CHPA2011US015701

PATIENT
  Age: 86 Year
  Sex: Female

DRUGS (4)
  1. VOLTAREN [Suspect]
     Indication: OSTEOARTHRITIS
     Dosage: APPLY TO FINGER, TID
     Route: 061
  2. ACETYLSALICYLIC ACID SRT [Concomitant]
     Dosage: UNK
     Route: 048
  3. PLAVIX [Concomitant]
     Dosage: UNK
     Route: 048
  4. VOLTAREN [Suspect]
     Dosage: UNK, TWICE MAYBE THREE TIMES A WEEK
     Route: 061
     Dates: start: 20110801

REACTIONS (8)
  - ELDER ABUSE [None]
  - GAIT DISTURBANCE [None]
  - MYOCARDIAL INFARCTION [None]
  - UNDERDOSE [None]
  - ANAEMIA [None]
  - WRONG TECHNIQUE IN DRUG USAGE PROCESS [None]
  - ANKLE FRACTURE [None]
  - FALL [None]
